FAERS Safety Report 6253347-0 (Version None)
Quarter: 2009Q3

REPORT INFORMATION
  Report Type: 
  Country: None (occurrence: None)
  Receive Date: 20090701
  Receipt Date: 20090622
  Transmission Date: 20100115
  Serious: Yes (Other)
  Sender: FDA-Public Use
  Company Number: PHHY2009DE11049

PATIENT
  Sex: Male
  Weight: 100 kg

DRUGS (3)
  1. DIOVAN [Suspect]
     Indication: HYPERTENSION
     Dosage: 1 DF, QD
     Route: 048
     Dates: start: 20060101, end: 20081201
  2. DIOVAN [Suspect]
     Dosage: 80 MG, QD
     Route: 048
     Dates: start: 20081201, end: 20090301
  3. IBUPROFEN TABLETS [Suspect]
     Indication: OSTEOARTHRITIS
     Dosage: 600 MG, PRN
     Route: 048
     Dates: end: 20090101

REACTIONS (8)
  - BLISTER [None]
  - DERMATITIS PSORIASIFORM [None]
  - DIZZINESS [None]
  - NEURODERMATITIS [None]
  - PEMPHIGUS [None]
  - PRURITUS [None]
  - RASH [None]
  - RASH MACULAR [None]
